FAERS Safety Report 8597341-3 (Version None)
Quarter: 2012Q3

REPORT INFORMATION
  Report Type: 
  Country: None (occurrence: None)
  Receive Date: 20120816
  Receipt Date: 20120810
  Transmission Date: 20120928
  Serious: No
  Sender: FDA-Public Use
  Company Number: US-PFIZER INC-2012182098

PATIENT
  Age: 52 Year
  Sex: Female
  Weight: 68 kg

DRUGS (5)
  1. LYRICA [Suspect]
     Dosage: 150 MG, 2X/DAY
  2. BUSPIRONE [Concomitant]
     Indication: ANXIETY
     Dosage: 15 MG, 3X/DAY
  3. LYRICA [Suspect]
     Indication: FIBROMYALGIA
     Dosage: 75 MG, 2X/DAY
     Route: 048
     Dates: start: 20120601
  4. LYRICA [Suspect]
     Dosage: 75 MG, 3X/DAY
     Route: 048
     Dates: start: 20120101
  5. PROZAC [Concomitant]
     Indication: BLOOD PRESSURE ABNORMAL
     Dosage: 60 MG, 1X/DAY

REACTIONS (1)
  - DRUG INEFFECTIVE [None]
